FAERS Safety Report 15690131 (Version 1)
Quarter: 2018Q4

REPORT INFORMATION
  Report Type: Spontaneous
  Country: US (occurrence: US)
  Receive Date: 20181205
  Receipt Date: 20181205
  Transmission Date: 20190205
  Serious: No
  Sender: FDA-Public Use
  Company Number: US-PFIZER INC-2018502057

PATIENT
  Age: 58 Year
  Sex: Female

DRUGS (1)
  1. SUTENT [Suspect]
     Active Substance: SUNITINIB MALATE
     Indication: PANCREATIC CARCINOMA
     Dosage: 50 MG, 1X/DAY
     Route: 048
     Dates: start: 20180921

REACTIONS (3)
  - Abdominal discomfort [Unknown]
  - Alopecia [Unknown]
  - Nausea [Unknown]

NARRATIVE: CASE EVENT DATE: 20181130
